FAERS Safety Report 21580316 (Version 1)
Quarter: 2022Q4

REPORT INFORMATION
  Report Type: Report from Study
  Country: US (occurrence: US)
  Receive Date: 20221110
  Receipt Date: 20221110
  Transmission Date: 20230113
  Serious: No
  Sender: FDA-Public Use
  Company Number: US-ACADIA PHARMACEUTICALS INC.-ACA-2022-PIM-003621

PATIENT
  Age: 69 Year
  Sex: Female

DRUGS (11)
  1. NUPLAZID [Suspect]
     Active Substance: PIMAVANSERIN TARTRATE
     Indication: Parkinson^s disease
     Dosage: 34 MILLIGRAM, QD
     Route: 048
     Dates: start: 20220812, end: 20220826
  2. PREVACID [Concomitant]
     Active Substance: LANSOPRAZOLE
  3. MIRAPEX [Concomitant]
     Active Substance: PRAMIPEXOLE DIHYDROCHLORIDE
  4. BUSPAR [Concomitant]
     Active Substance: BUSPIRONE HYDROCHLORIDE
  5. CELECOXIB [Concomitant]
     Active Substance: CELECOXIB
  6. CRESTOR [Concomitant]
     Active Substance: ROSUVASTATIN CALCIUM
  7. RYTARY [Concomitant]
     Active Substance: CARBIDOPA\LEVODOPA
  8. CANDESARTAN [Concomitant]
     Active Substance: CANDESARTAN
  9. TRAZODONE [Concomitant]
     Active Substance: TRAZODONE HYDROCHLORIDE
  10. ATIVAN [Concomitant]
     Active Substance: LORAZEPAM
  11. VITAMINS [Concomitant]
     Active Substance: VITAMINS
     Indication: Vitamin supplementation

REACTIONS (1)
  - Drug ineffective [Recovered/Resolved]

NARRATIVE: CASE EVENT DATE: 20220812
